FAERS Safety Report 11761029 (Version 1)
Quarter: 2015Q4

REPORT INFORMATION
  Report Type: Spontaneous
  Country: TR (occurrence: TR)
  Receive Date: 20151120
  Receipt Date: 20151120
  Transmission Date: 20160304
  Serious: Yes (Other)
  Sender: FDA-Public Use
  Company Number: TR-WATSON-2015-25119

PATIENT
  Age: 47 Year
  Sex: Female

DRUGS (3)
  1. CIPROFLOXACIN HYDROCHLORIDE (UNKNOWN) [Suspect]
     Active Substance: CIPROFLOXACIN HYDROCHLORIDE
     Indication: DRUG PROVOCATION TEST
     Dosage: UNK
     Route: 048
  2. METRONIDAZOLE (UNKNOWN) [Suspect]
     Active Substance: METRONIDAZOLE
     Indication: DRUG PROVOCATION TEST
     Dosage: UNK
     Route: 048
  3. MOXIFLOXACIN (UNKNOWN) [Suspect]
     Active Substance: MOXIFLOXACIN
     Indication: DRUG PROVOCATION TEST
     Dosage: UNK
     Route: 065

REACTIONS (3)
  - Anaphylactic reaction [Recovered/Resolved]
  - Angioedema [Unknown]
  - Skin test positive [Recovered/Resolved]
